FAERS Safety Report 23459603 (Version 1)
Quarter: 2024Q1

REPORT INFORMATION
  Report Type: Report from Study
  Country: IT (occurrence: IT)
  Receive Date: 20240131
  Receipt Date: 20240131
  Transmission Date: 20240409
  Serious: Yes (Other)
  Sender: FDA-Public Use
  Company Number: IT-UCBSA-2024004488

PATIENT
  Sex: Male

DRUGS (9)
  1. FENFLURAMINE HYDROCHLORIDE [Suspect]
     Active Substance: FENFLURAMINE HYDROCHLORIDE
     Indication: Severe myoclonic epilepsy of infancy
     Dosage: 2.2 MILLIGRAM/ DAY (0.2 MG/KG/D) (INITIAL DOSE)
  2. FENFLURAMINE HYDROCHLORIDE [Suspect]
     Active Substance: FENFLURAMINE HYDROCHLORIDE
     Dosage: 6.6 MILLIGRAM/ DAY (0.6 MG/KG/D) (TITRATION UPTO)
  3. FENFLURAMINE HYDROCHLORIDE [Suspect]
     Active Substance: FENFLURAMINE HYDROCHLORIDE
     Dosage: 0.7 MILLIGRAM/KILOGRAM APPROXIMATE/DAY
  4. LEVETIRACETAM [Suspect]
     Active Substance: LEVETIRACETAM
     Indication: Severe myoclonic epilepsy of infancy
     Dosage: 32 MILLIGRAM/KILOGRAM/DAY APPROXIMATELY
  5. LEVETIRACETAM [Suspect]
     Active Substance: LEVETIRACETAM
     Indication: Off label use
     Dosage: 40 MILLIGRAM/KILOGRAM/DAY APPROXIMATELY
  6. VALPROATE [Concomitant]
     Active Substance: VALPROIC ACID
     Indication: Severe myoclonic epilepsy of infancy
     Dosage: 30 MILLIGRAM/KILOGRAM/DAY, APPROXIMATELY
  7. CLOBAZAM [Concomitant]
     Active Substance: CLOBAZAM
     Indication: Severe myoclonic epilepsy of infancy
     Dosage: 1.2 MILLIGRAM/KILOGRAM
  8. MIDAZOLAM [Concomitant]
     Active Substance: MIDAZOLAM
     Indication: Severe myoclonic epilepsy of infancy
     Dosage: UNK
     Route: 048
  9. MIDAZOLAM [Concomitant]
     Active Substance: MIDAZOLAM
     Indication: Off label use

REACTIONS (4)
  - Seizure [Not Recovered/Not Resolved]
  - Syncope [Recovered/Resolved]
  - Fatigue [Recovered/Resolved]
  - Off label use [Unknown]
